FAERS Safety Report 14587436 (Version 5)
Quarter: 2019Q3

REPORT INFORMATION
  Report Type: Spontaneous
  Country: DK (occurrence: DK)
  Receive Date: 20180301
  Receipt Date: 20190919
  Transmission Date: 20191004
  Serious: Yes (Other)
  Sender: FDA-Public Use
  Company Number: DK-PFIZER INC-2018079830

PATIENT
  Age: 48 Year
  Sex: Male

DRUGS (8)
  1. CALCIUM FOLINATE [Suspect]
     Active Substance: LEUCOVORIN CALCIUM
     Indication: RECTAL CANCER METASTATIC
     Dosage: UNK
     Route: 065
     Dates: start: 2013
  2. FLUOROURACIL. [Suspect]
     Active Substance: FLUOROURACIL
     Indication: RECTAL CANCER METASTATIC
     Dosage: UNK
     Route: 065
     Dates: start: 2013
  3. AVASTIN /00848101/ [Suspect]
     Active Substance: SIMVASTATIN
     Indication: RECTAL CANCER METASTATIC
     Dosage: UNK
     Dates: start: 2016
  4. AVASTIN [Suspect]
     Active Substance: BEVACIZUMAB
     Indication: RECTAL CANCER METASTATIC
     Dosage: UNK
     Route: 065
     Dates: start: 2016
  5. IRINOTECAN HCL [Suspect]
     Active Substance: IRINOTECAN HYDROCHLORIDE
     Indication: RECTAL CANCER METASTATIC
     Dosage: UNK
     Route: 065
     Dates: start: 2013
  6. FOLINIC ACID [Suspect]
     Active Substance: LEUCOVORIN
     Indication: RECTAL CANCER METASTATIC
     Dosage: UNK
     Dates: start: 2013
  7. IRINOTECAN HCL [Suspect]
     Active Substance: IRINOTECAN HYDROCHLORIDE
     Dosage: UNK
     Route: 065
     Dates: start: 2013
  8. XELODA [Suspect]
     Active Substance: CAPECITABINE
     Indication: RECTAL CANCER METASTATIC
     Dosage: UNK
     Route: 065
     Dates: start: 2013

REACTIONS (10)
  - Alopecia [Recovered/Resolved]
  - Pain [Recovered/Resolved]
  - Off label use [Unknown]
  - Temperature intolerance [Recovered/Resolved]
  - Joint range of motion decreased [Recovered/Resolved]
  - Product administration error [Unknown]
  - Muscle rupture [Recovered/Resolved]
  - Nausea [Recovered/Resolved]
  - Throat tightness [Recovered/Resolved]
  - Infusion site extravasation [Unknown]

NARRATIVE: CASE EVENT DATE: 201312
